FAERS Safety Report 5495074-3 (Version None)
Quarter: 2007Q4

REPORT INFORMATION
  Report Type: 
  Country: None (occurrence: None)
  Receive Date: 20071015
  Receipt Date: 20070306
  Transmission Date: 20080405
  Serious: Yes (Other)
  Sender: FDA-Public Use
  Company Number: S07-USA-01044-01

PATIENT
  Sex: Female

DRUGS (2)
  1. LEXAPRO [Suspect]
  2. LITHIUM CARBONATE [Concomitant]

REACTIONS (5)
  - DELUSION [None]
  - HALLUCINATION, AUDITORY [None]
  - LIBIDO INCREASED [None]
  - MUSCULOSKELETAL STIFFNESS [None]
  - SUICIDAL IDEATION [None]
